FAERS Safety Report 12001245 (Version 1)
Quarter: 2016Q1

REPORT INFORMATION
  Report Type: Spontaneous
  Country: JP (occurrence: JP)
  Receive Date: 20160204
  Receipt Date: 20160204
  Transmission Date: 20160526
  Serious: Yes (Hospitalization)
  Sender: FDA-Public Use
  Company Number: JP-PSKUSFDA-2016-JP-0015

PATIENT
  Age: 55 Year
  Sex: Female

DRUGS (1)
  1. FARESTON [Suspect]
     Active Substance: TOREMIFENE CITRATE
     Indication: BREAST CANCER

REACTIONS (3)
  - Endometrial thickening [None]
  - Endometrial adenocarcinoma [None]
  - Cervical polyp [None]
